FAERS Safety Report 12681827 (Version 1)
Quarter: 2016Q3

REPORT INFORMATION
  Report Type: Report from Study
  Country: US (occurrence: US)
  Receive Date: 20160824
  Receipt Date: 20160824
  Transmission Date: 20161109
  Serious: Yes (Other)
  Sender: FDA-Public Use
  Company Number: US-REGENERON PHARMACEUTICALS, INC.-2016-20764

PATIENT

DRUGS (2)
  1. EYLEA [Suspect]
     Active Substance: AFLIBERCEPT
     Indication: DIABETES MELLITUS
     Dosage: UNK, IN BOTH EYES
  2. EYLEA [Suspect]
     Active Substance: AFLIBERCEPT
     Indication: INTRAOCULAR PRESSURE TEST ABNORMAL
     Dosage: UNK, IN BOTH EYES
     Dates: start: 20160816, end: 20160816

REACTIONS (3)
  - Cataract operation [Unknown]
  - Eye operation [Unknown]
  - Off label use [Unknown]

NARRATIVE: CASE EVENT DATE: 2015
